FAERS Safety Report 13176089 (Version 1)
Quarter: 2017Q1

REPORT INFORMATION
  Report Type: Spontaneous
  Country: US (occurrence: US)
  Receive Date: 20170201
  Receipt Date: 20170201
  Transmission Date: 20170428
  Serious: No
  Sender: FDA-Public Use
  Company Number: US-PERRIGO-16US017334

PATIENT
  Age: 10 Year
  Sex: Female

DRUGS (2)
  1. IBUPROFEN. [Suspect]
     Active Substance: IBUPROFEN
     Indication: EAR PAIN
     Dosage: 200 MG, SINGLE
     Route: 048
     Dates: start: 20160617, end: 20160617
  2. IBUPROFEN. [Concomitant]
     Active Substance: IBUPROFEN
     Indication: EAR PAIN
     Dosage: UNKNOWN, SINGLE
     Route: 048
     Dates: start: 20160617, end: 20160617

REACTIONS (3)
  - Expired product administered [Unknown]
  - Overdose [Recovered/Resolved]
  - Drug administered to patient of inappropriate age [Unknown]

NARRATIVE: CASE EVENT DATE: 20160617
